FAERS Safety Report 6748189-3 (Version None)
Quarter: 2010Q2

REPORT INFORMATION
  Report Type: 
  Country: None (occurrence: None)
  Receive Date: 20100531
  Receipt Date: 20100517
  Transmission Date: 20101027
  Serious: Yes (Hospitalization)
  Sender: FDA-Public Use
  Company Number: US-ELI_LILLY_AND_COMPANY-US201005004600

PATIENT
  Age: 41 Year
  Sex: Male

DRUGS (3)
  1. CYMBALTA [Suspect]
     Indication: DEPRESSION
     Dosage: 30 MG, 3/D
     Dates: start: 20090101
  2. PROZAC [Suspect]
     Indication: DEPRESSION
  3. TRAZODONE HCL [Concomitant]

REACTIONS (4)
  - ABDOMINAL PAIN [None]
  - DRUG INEFFECTIVE [None]
  - GASTRIC BYPASS [None]
  - INTENTIONAL DRUG MISUSE [None]
